FAERS Safety Report 22345841 (Version 2)
Quarter: 2023Q2

REPORT INFORMATION
  Report Type: Spontaneous
  Country: US (occurrence: US)
  Receive Date: 20230519
  Receipt Date: 20230622
  Transmission Date: 20230721
  Serious: No
  Sender: FDA-Public Use
  Company Number: US-BRISTOL-MYERS SQUIBB COMPANY-2023-070148

PATIENT
  Age: 90 Year
  Sex: Female
  Weight: 61.234 kg

DRUGS (2)
  1. ELIQUIS [Suspect]
     Active Substance: APIXABAN
     Indication: Cerebrovascular accident prophylaxis
     Route: 048
     Dates: start: 202204
  2. ELIQUIS [Suspect]
     Active Substance: APIXABAN
     Route: 048

REACTIONS (8)
  - Spinal pain [Unknown]
  - Back pain [Unknown]
  - Arthralgia [Unknown]
  - Peripheral swelling [Recovering/Resolving]
  - Pain [Unknown]
  - Sleep disorder [Unknown]
  - Nervous system disorder [Unknown]
  - Scoliosis [Unknown]

NARRATIVE: CASE EVENT DATE: 20230101
